FAERS Safety Report 10066515 (Version 1)
Quarter: 2014Q2

REPORT INFORMATION
  Report Type: Spontaneous
  Country: US (occurrence: US)
  Receive Date: 20140408
  Receipt Date: 20140408
  Transmission Date: 20141212
  Serious: No
  Sender: FDA-Public Use
  Company Number: US-TEVA-471729USA

PATIENT
  Sex: Female

DRUGS (1)
  1. PROAIR HFA [Suspect]
     Indication: COUGH
     Dosage: 2 PUFFS TWICE DAILY

REACTIONS (2)
  - Headache [Unknown]
  - Wrong technique in drug usage process [Unknown]
